FAERS Safety Report 8761384 (Version 2)
Quarter: 2012Q4

REPORT INFORMATION
  Report Type: 
  Country: US (occurrence: US)
  Receive Date: 20120830
  Receipt Date: 20120924
  Transmission Date: 20130627
  Serious: Yes (Death, Hospitalization, Other)
  Sender: FDA-Public Use
  Company Number: US-PFIZER INC-2012211351

PATIENT
  Age: 20 Year
  Sex: Male

DRUGS (8)
  1. CISPLATIN [Suspect]
     Indication: TESTICULAR GERM CELL CANCER METASTATIC
     Dosage: administered with etoposide and bleomycin (2 cycles), then vinblastine and ifosfamide (1 cycle)
     Route: 065
  2. ETOPOSIDE [Suspect]
     Indication: TESTICULAR GERM CELL CANCER METASTATIC
     Dosage: UNK
     Route: 065
  3. IFOSFAMIDE [Suspect]
     Indication: TESTICULAR GERM CELL CANCER METASTATIC
     Dosage: UNK
     Route: 065
  4. BLEOMYCIN [Suspect]
     Indication: TESTICULAR GERM CELL CANCER METASTATIC
     Dosage: UNK
     Route: 065
  5. VINBLASTINE [Suspect]
     Indication: TESTICULAR GERM CELL CANCER METASTATIC
     Dosage: UNK
     Route: 065
  6. DEXAMETHASONE [Concomitant]
     Indication: PROPHYLAXIS
     Dosage: UNK
     Route: 065
  7. DEXAMETHASONE [Concomitant]
     Indication: INTRACRANIAL PRESSURE INCREASED
  8. LEVETIRACETAM [Concomitant]
     Indication: CONVULSION PROPHYLAXIS
     Dosage: UNK
     Route: 065

REACTIONS (4)
  - Disease progression [Fatal]
  - Testicular germ cell cancer metastatic [Fatal]
  - Hypoxia [Fatal]
  - Respiratory failure [Not Recovered/Not Resolved]
